FAERS Safety Report 10521328 (Version 4)
Quarter: 2015Q1

REPORT INFORMATION
  Report Type: Spontaneous
  Country: CA (occurrence: CA)
  Receive Date: 20141016
  Receipt Date: 20150113
  Transmission Date: 20150720
  Serious: Yes (Other)
  Sender: FDA-Public Use
  Company Number: CA-ROCHE-1475821

PATIENT
  Age: 59 Year
  Sex: Male

DRUGS (6)
  1. NASONEX [Concomitant]
     Active Substance: MOMETASONE FUROATE
  2. XOLAIR [Suspect]
     Active Substance: OMALIZUMAB
     Indication: ASTHMA
     Route: 058
     Dates: start: 20130611
  3. ADVAIR HFA [Concomitant]
     Active Substance: FLUTICASONE PROPIONATE\SALMETEROL XINAFOATE
  4. XOLAIR [Suspect]
     Active Substance: OMALIZUMAB
     Route: 058
     Dates: start: 20141030
  5. XOLAIR [Suspect]
     Active Substance: OMALIZUMAB
     Route: 058
     Dates: start: 20130625
  6. XOLAIR [Suspect]
     Active Substance: OMALIZUMAB
     Route: 058
     Dates: start: 20150108

REACTIONS (13)
  - Wheezing [Unknown]
  - Dyspnoea [Unknown]
  - Lip swelling [Recovered/Resolved]
  - Lacrimation increased [Unknown]
  - Influenza [Unknown]
  - Muscle tightness [Recovered/Resolved]
  - Musculoskeletal stiffness [Unknown]
  - Eye pain [Unknown]
  - Nausea [Recovered/Resolved]
  - Feeling drunk [Unknown]
  - Chest discomfort [Unknown]
  - Eye pruritus [Unknown]
  - Sinusitis [Recovering/Resolving]

NARRATIVE: CASE EVENT DATE: 20130611
